FAERS Safety Report 5894584-4 (Version None)
Quarter: 2008Q3

REPORT INFORMATION
  Report Type: 
  Country: None (occurrence: None)
  Receive Date: 20080922
  Receipt Date: 20080910
  Transmission Date: 20090109
  Serious: Yes (Death, Hospitalization)
  Sender: FDA-Public Use
  Company Number: 2008AL008955

PATIENT
  Age: 78 Year
  Sex: Male

DRUGS (1)
  1. DIGOXIN [Suspect]
     Indication: ARRHYTHMIA
     Dosage: PO
     Route: 048
     Dates: start: 20060101, end: 20070101

REACTIONS (4)
  - ABASIA [None]
  - ASTHENIA [None]
  - MYELODYSPLASTIC SYNDROME [None]
  - RENAL FAILURE [None]
